FAERS Safety Report 7928399-X (Version None)
Quarter: 2011Q4

REPORT INFORMATION
  Report Type: 
  Country: None (occurrence: None)
  Receive Date: 20111118
  Receipt Date: 20111110
  Transmission Date: 20120403
  Serious: Yes (Other)
  Sender: FDA-Public Use
  Company Number: US-US-EMD SERONO, INC.-7095358

PATIENT
  Sex: Female

DRUGS (2)
  1. REBIF [Suspect]
     Indication: PRODUCT USED FOR UNKNOWN INDICATION
     Route: 058
     Dates: start: 20110511
  2. NAPROXEN [Concomitant]
     Indication: ARTHRITIS
     Dates: start: 20110601

REACTIONS (4)
  - BALANCE DISORDER [None]
  - INJECTION SITE PAIN [None]
  - SINUS DISORDER [None]
  - ARTHRALGIA [None]
